FAERS Safety Report 13883507 (Version 2)
Quarter: 2017Q3

REPORT INFORMATION
  Report Type: Report from Study
  Country: None (occurrence: BE)
  Receive Date: 20170818
  Receipt Date: 20170823
  Transmission Date: 20171127
  Serious: Yes (Death)
  Sender: FDA-Public Use
  Company Number: BE-ABBVIE-17K-013-2075966-00

PATIENT
  Age: 79 Year
  Sex: Male

DRUGS (8)
  1. PROLOPA 250 [Concomitant]
     Indication: PRODUCT USED FOR UNKNOWN INDICATION
     Dosage: FORM STRENGTH:200/50MG DOSE:0.75TAB 2/DAY+UNSPECIFIED DOSE AT 8AM PRIOR TO DUODOPA THERAPY
  2. OMEPRAZOLE. [Concomitant]
     Active Substance: OMEPRAZOLE
     Indication: PRODUCT USED FOR UNKNOWN INDICATION
  3. DUODOPA [Suspect]
     Active Substance: CARBIDOPA\LEVODOPA
     Dosage: DOSES CONTINUOUSLY MONITORED AND ADAPTED
     Route: 050
     Dates: start: 20131003, end: 20170421
  4. PROLOPA 250 [Concomitant]
     Dosage: FORM STRENGTH: 200MG/50MG?UNIT DOSE : 0.5 UNIT?ON REQUEST AS RESCUE MEDICATION
  5. DUODOPA [Suspect]
     Active Substance: CARBIDOPA\LEVODOPA
     Dosage: MD=5ML??CD=1.5ML/HR DURING 16HRS ??EDA=1ML
     Route: 050
     Dates: start: 20170421
  6. AMLOR [Concomitant]
     Active Substance: AMLODIPINE BESYLATE
     Indication: PRODUCT USED FOR UNKNOWN INDICATION
  7. EFFORTIL [Concomitant]
     Active Substance: ETILEFRINE HYDROCHLORIDE
     Indication: PRODUCT USED FOR UNKNOWN INDICATION
  8. DUODOPA [Suspect]
     Active Substance: CARBIDOPA\LEVODOPA
     Indication: PARKINSON^S DISEASE
     Dosage: MD=5.5ML??CD=2.7ML/HR DURING 16HRS ??EDA=1ML
     Route: 050
     Dates: start: 20130930, end: 20131003

REACTIONS (1)
  - Sudden death [Fatal]

NARRATIVE: CASE EVENT DATE: 20170818
